FAERS Safety Report 25642558 (Version 1)
Quarter: 2025Q3

REPORT INFORMATION
  Report Type: Spontaneous
  Country: US (occurrence: US)
  Receive Date: 20250805
  Receipt Date: 20250805
  Transmission Date: 20251020
  Serious: Yes (Other)
  Sender: BRISTOL-MYERS SQUIBB COMPANY
  Company Number: US-BRISTOL-MYERS SQUIBB COMPANY-2025-107631

PATIENT
  Age: 52 Year
  Sex: Male

DRUGS (1)
  1. POMALYST [Suspect]
     Active Substance: POMALIDOMIDE
     Indication: Product used for unknown indication
     Dosage: 3MG, QD FOR 21 DAYS THEN 7 DAYS OFF
     Route: 048

REACTIONS (2)
  - Malignant neoplasm progression [Unknown]
  - Drug ineffective [Unknown]
